FAERS Safety Report 4390815-0 (Version None)
Quarter: 2004Q3

REPORT INFORMATION
  Report Type: 
  Country: None (occurrence: None)
  Receive Date: 20040707
  Receipt Date: 20040628
  Transmission Date: 20050211
  Serious: Yes (Hospitalization, Other)
  Sender: FDA-Public Use
  Company Number: 200416482GDDC

PATIENT
  Age: 48 Year
  Sex: Male
  Weight: 77 kg

DRUGS (7)
  1. DOCETAXEL [Suspect]
     Indication: NON-SMALL CELL LUNG CANCER
     Route: 042
     Dates: start: 20040604, end: 20040604
  2. DICLOFENAC SODIUM [Concomitant]
  3. METOCLOPRAMIDE [Concomitant]
  4. BIFITERAL [Concomitant]
  5. PANTOZOL [Concomitant]
  6. DURAGESIC [Concomitant]
  7. MORONAL [Concomitant]

REACTIONS (4)
  - ABDOMINAL PAIN [None]
  - DIARRHOEA [None]
  - NAUSEA [None]
  - WEIGHT DECREASED [None]
